FAERS Safety Report 6528682-9 (Version None)
Quarter: 2009Q4

REPORT INFORMATION
  Report Type: 
  Country: None (occurrence: None)
  Receive Date: 20091222
  Receipt Date: 20091215
  Transmission Date: 20100525
  Serious: Yes (Other)
  Sender: FDA-Public Use
  Company Number: A0835353A

PATIENT
  Age: 28 Year
  Sex: Male

DRUGS (1)
  1. SODIUM FLUORIDE + ISOPENTANE TOOTHPASTE (SODIUM FLUORIDE + ISOPENTANE) [Suspect]
     Indication: DENTAL CLEANING
     Dosage: DENTAL
     Route: 004

REACTIONS (3)
  - GINGIVAL ATROPHY [None]
  - GINGIVAL BLEEDING [None]
  - GINGIVAL PAIN [None]
